FAERS Safety Report 5860075-X (Version None)
Quarter: 2008Q3

REPORT INFORMATION
  Report Type: 
  Country: None (occurrence: None)
  Receive Date: 20080818
  Receipt Date: 20080627
  Transmission Date: 20090109
  Serious: No
  Sender: FDA-Public Use
  Company Number: WAES 0807USA00441

PATIENT
  Age: 74 Year
  Sex: Female

DRUGS (8)
  1. JANUVIA [Suspect]
     Dosage: PO
     Route: 048
  2. CRESTOR [Concomitant]
  3. DIOVAN [Concomitant]
  4. LEVEMIR [Concomitant]
  5. MOBIC [Concomitant]
  6. SYNTHROID [Concomitant]
  7. GLYBURIDE [Concomitant]
  8. METFORMIN HCL [Concomitant]

REACTIONS (2)
  - BLOOD GLUCOSE INCREASED [None]
  - GLYCOSYLATED HAEMOGLOBIN DECREASED [None]
